FAERS Safety Report 8911904 (Version 3)
Quarter: 2013Q2

REPORT INFORMATION
  Report Type: Spontaneous
  Country: US (occurrence: US)
  Receive Date: 20121116
  Receipt Date: 20130429
  Transmission Date: 20140414
  Serious: Yes (Hospitalization, Other)
  Sender: FDA-Public Use
  Company Number: US-009507513-1211USA004969

PATIENT
  Sex: Female
  Weight: 77.98 kg

DRUGS (1)
  1. NUVARING [Suspect]
     Indication: CONTRACEPTION
     Dosage: UNK
     Route: 067
     Dates: start: 20060424, end: 20091112

REACTIONS (7)
  - Pulmonary embolism [Unknown]
  - Deep vein thrombosis [Unknown]
  - Varicose vein [Unknown]
  - Patellofemoral pain syndrome [Unknown]
  - Muscle spasms [Unknown]
  - Maternal exposure before pregnancy [Unknown]
  - Pulmonary embolism [Unknown]
